FAERS Safety Report 9993440 (Version 2)
Quarter: 2015Q1

REPORT INFORMATION
  Report Type: Spontaneous
  Country: DK (occurrence: DK)
  Receive Date: 20140310
  Receipt Date: 20150325
  Transmission Date: 20150721
  Serious: Yes (Other)
  Sender: FDA-Public Use
  Company Number: PHHY2014DK028100

PATIENT
  Age: 59 Year
  Sex: Female

DRUGS (4)
  1. BONDRONAT [Suspect]
     Active Substance: IBANDRONIC ACID
     Dosage: 50 MG, QD
     Route: 048
     Dates: start: 20090129, end: 20120329
  2. BONDRONAT [Suspect]
     Active Substance: IBANDRONIC ACID
     Indication: METASTASES TO BREAST
     Dosage: 50 MG, QD
     Route: 048
     Dates: start: 20090121, end: 20120329
  3. PREDNISOLON [Concomitant]
     Active Substance: PREDNISOLONE
     Indication: PRODUCT USED FOR UNKNOWN INDICATION
     Route: 065
  4. ZOMETA [Suspect]
     Active Substance: ZOLEDRONIC ACID
     Indication: METASTASES TO BREAST
     Dosage: 4 MG/5 ML
     Route: 042
     Dates: start: 20070701, end: 20090129

REACTIONS (1)
  - Osteonecrosis of jaw [Recovered/Resolved]

NARRATIVE: CASE EVENT DATE: 20120330
